FAERS Safety Report 5520448-1 (Version None)
Quarter: 2007Q4

REPORT INFORMATION
  Report Type: 
  Country: None (occurrence: None)
  Receive Date: 20071119
  Receipt Date: 20071108
  Transmission Date: 20080405
  Serious: Yes (Other)
  Sender: FDA-Public Use
  Company Number: PHBS2007BR18771

PATIENT
  Age: 88 Year
  Sex: Female
  Weight: 75 kg

DRUGS (5)
  1. PAMELOR [Suspect]
     Indication: DEPRESSION
     Dosage: 2 SPOON AT NIGHT
     Route: 048
     Dates: start: 20050101
  2. NEXIUM [Concomitant]
     Indication: GASTRIC DISORDER
     Dosage: 20 MG, QD
     Route: 048
  3. ERANZ [Concomitant]
     Indication: DEMENTIA ALZHEIMER'S TYPE
     Dosage: 10 MG, QD
     Route: 048
  4. PREXIGE [Suspect]
     Indication: PAIN
     Dosage: 100 MG, PRN
     Route: 048
  5. HYDERGINE [Suspect]
     Indication: CARDIOVASCULAR DISORDER
     Dosage: 1 MG, QD
     Route: 048

REACTIONS (2)
  - AGGRESSION [None]
  - DEMENTIA ALZHEIMER'S TYPE [None]
